FAERS Safety Report 9137812 (Version 4)
Quarter: 2013Q2

REPORT INFORMATION
  Report Type: Spontaneous
  Country: IE (occurrence: IE)
  Receive Date: 20130304
  Receipt Date: 20130411
  Transmission Date: 20140414
  Serious: No
  Sender: FDA-Public Use
  Company Number: IE-ASTRAZENECA-2013SE12530

PATIENT
  Age: 34 Year
  Sex: Male
  Weight: 82.6 kg

DRUGS (2)
  1. SYMBICORT [Suspect]
     Indication: ASTHMA
     Dosage: 200/6, 2 PUFFS BID
     Route: 055
     Dates: start: 2007, end: 2013
  2. SYMBICORT [Suspect]
     Indication: ASTHMA
     Dosage: 200/6, 2 PUFFS FIVE TIMES IN ONE DAY
     Route: 055

REACTIONS (2)
  - Overdose [Unknown]
  - Pericarditis [Recovering/Resolving]
